FAERS Safety Report 12718283 (Version 2)
Quarter: 2016Q3

REPORT INFORMATION
  Report Type: Spontaneous
  Country: US (occurrence: US)
  Receive Date: 20160906
  Receipt Date: 20160923
  Transmission Date: 20161109
  Serious: No
  Sender: FDA-Public Use
  Company Number: US-009507513-1608USA013298

PATIENT
  Age: 32 Year
  Sex: Female
  Weight: 117.1 kg

DRUGS (1)
  1. NEXPLANON [Suspect]
     Active Substance: ETONOGESTREL
     Dosage: UNK
     Route: 059
     Dates: start: 201211

REACTIONS (2)
  - Incorrect drug administration duration [Unknown]
  - Complication associated with device [Unknown]

NARRATIVE: CASE EVENT DATE: 2015
